FAERS Safety Report 22109769 (Version 1)
Quarter: 2023Q1

REPORT INFORMATION
  Report Type: Spontaneous
  Country: AU (occurrence: None)
  Receive Date: 20230317
  Receipt Date: 20230317
  Transmission Date: 20230418
  Serious: Yes (Other)
  Sender: FDA-Public Use
  Company Number: 2023A062661

PATIENT
  Age: 52 Year
  Sex: Female

DRUGS (6)
  1. FULVESTRANT [Suspect]
     Active Substance: FULVESTRANT
  2. RIBOCICLIB [Suspect]
     Active Substance: RIBOCICLIB
  3. TAMOXIFEN CITRATE [Suspect]
     Active Substance: TAMOXIFEN CITRATE
  4. ANASTROZOLE [Suspect]
     Active Substance: ANASTROZOLE
  5. ZOLADEX [Suspect]
     Active Substance: GOSERELIN ACETATE
  6. DOCETAXEL [Suspect]
     Active Substance: DOCETAXEL

REACTIONS (4)
  - Metastases to bone [Unknown]
  - Metastases to liver [Unknown]
  - Oestradiol abnormal [Unknown]
  - Vaginal haemorrhage [Unknown]
